FAERS Safety Report 25370936 (Version 6)
Quarter: 2025Q3

REPORT INFORMATION
  Report Type: Report from Study
  Country: EU (occurrence: EU)
  Receive Date: 20250528
  Receipt Date: 20250925
  Transmission Date: 20251021
  Serious: Yes (Other)
  Sender: UCB
  Company Number: EU-UCBSA-2025031392

PATIENT
  Age: 44 Year
  Sex: Female
  Weight: 60 kg

DRUGS (16)
  1. BIMEKIZUMAB [Suspect]
     Active Substance: BIMEKIZUMAB
     Indication: Axial spondyloarthritis
     Dosage: 160 MILLIGRAM, MONTHLY (QM)
     Route: 058
     Dates: start: 20250219, end: 20250412
  2. VITAMIN D NOS [Concomitant]
     Active Substance: CHOLECALCIFEROL\ERGOCALCIFEROL
     Indication: Prophylaxis
     Dosage: 50000 IU INTERNATIONAL UNIT MONTHLY (QM)
     Dates: start: 20250210
  3. FLUCONAZOLE [Concomitant]
     Active Substance: FLUCONAZOLE
     Indication: Fungal oesophagitis
     Dosage: 100 MILLIGRAM, ONCE DAILY (QD)
     Dates: start: 20250522, end: 20250611
  4. FLUCONAZOLE [Concomitant]
     Active Substance: FLUCONAZOLE
     Dosage: 200 MILLIGRAM, ONCE DAILY (QD)
     Dates: start: 20250521, end: 20250521
  5. ZOPICLONE [Concomitant]
     Active Substance: ZOPICLONE
     Indication: Sleep disorder
     Dates: start: 2025
  6. ZOPICLONE [Concomitant]
     Active Substance: ZOPICLONE
     Indication: Anxiolytic therapy
  7. VORTIOXETINE [Concomitant]
     Active Substance: VORTIOXETINE
     Indication: Antidepressant therapy
     Dosage: 10 MILLIGRAM, ONCE DAILY (QD)
     Dates: start: 20250521
  8. VORTIOXETINE [Concomitant]
     Active Substance: VORTIOXETINE
     Indication: Anxiolytic therapy
  9. AMPHOTERICIN B [Concomitant]
     Active Substance: AMPHOTERICIN B
     Indication: Antifungal treatment
     Dosage: 500 MILLIGRAM, 3X/DAY (TID)
     Dates: start: 20250330, end: 20250403
  10. ETORICOXIB [Concomitant]
     Active Substance: ETORICOXIB
     Indication: Axial spondyloarthritis
     Dates: start: 201609
  11. INDOMETHACIN SODIUM [Concomitant]
     Active Substance: INDOMETHACIN SODIUM
     Indication: Product used for unknown indication
     Dates: start: 20151105
  12. CODEINE [Concomitant]
     Active Substance: CODEINE
     Indication: Analgesic therapy
     Dates: start: 20140325
  13. CIMZIA [Concomitant]
     Active Substance: CERTOLIZUMAB PEGOL
     Indication: Product used for unknown indication
     Dates: start: 20201127, end: 202502
  14. PRAZEPAM [Concomitant]
     Active Substance: PRAZEPAM
     Indication: Anxiolytic therapy
     Dates: start: 2025
  15. CHOLECALCIFEROL [Concomitant]
     Active Substance: CHOLECALCIFEROL
     Indication: Vitamin supplementation
     Dates: start: 20250210
  16. NABUMETONE [Concomitant]
     Active Substance: NABUMETONE
     Indication: Product used for unknown indication
     Dates: start: 20250210, end: 20250219

REACTIONS (2)
  - Fungal oesophagitis [Not Recovered/Not Resolved]
  - Drug ineffective [Unknown]

NARRATIVE: CASE EVENT DATE: 20250101
